FAERS Safety Report 4308177-3 (Version None)
Quarter: 2004Q1

REPORT INFORMATION
  Report Type: 
  Country: None (occurrence: None)
  Receive Date: 20040301
  Receipt Date: 20030723
  Transmission Date: 20041129
  Serious: No
  Sender: FDA-Public Use
  Company Number: US-BRISTOL-MYERS SQUIBB COMPANY-12334207

PATIENT
  Age: 66 Year
  Sex: Male
  Weight: 98 kg

DRUGS (7)
  1. METFORMIN HCL [Suspect]
     Indication: DIABETES MELLITUS
     Route: 048
  2. GLIPIZIDE [Concomitant]
  3. BLOOD PRESSURE MEDICATION [Concomitant]
  4. ZOCOR [Concomitant]
  5. PREVACID [Concomitant]
  6. ASPIRIN [Concomitant]
  7. MULTI-VITAMIN [Concomitant]

REACTIONS (1)
  - DIARRHOEA [None]
